FAERS Safety Report 6253383-4 (Version None)
Quarter: 2009Q2

REPORT INFORMATION
  Report Type: 
  Country: None (occurrence: None)
  Receive Date: 20090629
  Receipt Date: 20090113
  Transmission Date: 20091009
  Serious: Yes (Other)
  Sender: FDA-Public Use
  Company Number: 608290

PATIENT
  Age: 87 Year
  Sex: Female

DRUGS (1)
  1. XELODA [Suspect]
     Indication: COLORECTAL CANCER

REACTIONS (2)
  - OEDEMA PERIPHERAL [None]
  - RENAL IMPAIRMENT [None]
